FAERS Safety Report 21172055 (Version 1)
Quarter: 2022Q3

REPORT INFORMATION
  Report Type: Spontaneous
  Country: US (occurrence: None)
  Receive Date: 20220803
  Receipt Date: 20220803
  Transmission Date: 20221027
  Serious: Yes (Disabling, Other)
  Sender: FDA-Public Use
  Company Number: None

PATIENT
  Age: 74 Year
  Sex: Female
  Weight: 65.25 kg

DRUGS (1)
  1. IPRATROPIUM [Suspect]
     Active Substance: IPRATROPIUM

REACTIONS (3)
  - Dizziness [None]
  - Rhinorrhoea [None]
  - Social avoidant behaviour [None]

NARRATIVE: CASE EVENT DATE: 20220803
